FAERS Safety Report 7151300-6 (Version None)
Quarter: 2010Q4

REPORT INFORMATION
  Report Type: 
  Country: None (occurrence: None)
  Receive Date: 20101207
  Receipt Date: 20101207
  Transmission Date: 20110411
  Serious: Yes (Life-Threatening, Other)
  Sender: FDA-Public Use
  Company Number: None

PATIENT
  Age: 56 Year
  Sex: Female
  Weight: 86.1834 kg

DRUGS (1)
  1. LEVAQUIN [Suspect]
     Indication: PNEUMONIA
     Dates: start: 20101117, end: 20101118

REACTIONS (4)
  - HYPERSENSITIVITY [None]
  - PALPITATIONS [None]
  - SWOLLEN TONGUE [None]
  - THROAT TIGHTNESS [None]
